FAERS Safety Report 24997824 (Version 1)
Quarter: 2025Q1

REPORT INFORMATION
  Report Type: Spontaneous
  Country: US (occurrence: US)
  Receive Date: 20250222
  Receipt Date: 20250222
  Transmission Date: 20250409
  Serious: No
  Sender: SANOFI AVENTIS
  Company Number: US-SA-2025SA041211

PATIENT
  Sex: Female
  Weight: 62.73 kg

DRUGS (5)
  1. DUPIXENT [Suspect]
     Active Substance: DUPILUMAB
     Indication: Nasal polyps
     Dosage: 300 MG, QOW
     Route: 058
  2. FLUCONAZOLE [Concomitant]
     Active Substance: FLUCONAZOLE
  3. DOXYCYCLINE [Concomitant]
     Active Substance: DOXYCYCLINE
  4. TACROLIMUS [Concomitant]
     Active Substance: TACROLIMUS
  5. SOOLANTRA [Concomitant]
     Active Substance: IVERMECTIN

REACTIONS (1)
  - Rosacea [Unknown]
